FAERS Safety Report 7724359-2 (Version None)
Quarter: 2011Q3

REPORT INFORMATION
  Report Type: 
  Country: None (occurrence: None)
  Receive Date: 20110901
  Receipt Date: 20110823
  Transmission Date: 20111222
  Serious: Yes (Hospitalization, Other)
  Sender: FDA-Public Use
  Company Number: US-ASTRAZENECA-2011SE09863

PATIENT
  Age: 64 Year
  Sex: Female
  Weight: 62.6 kg

DRUGS (18)
  1. NEXIUM [Suspect]
     Indication: BARRETT'S OESOPHAGUS
     Route: 048
     Dates: end: 20110216
  2. NEXIUM [Suspect]
     Route: 048
  3. NEXIUM [Suspect]
     Route: 048
  4. CARAFATE [Concomitant]
     Dosage: BEFORE MEALS AND AT BEDTIME
     Route: 048
  5. DIOVAN [Concomitant]
  6. MAGNESIUM [Concomitant]
  7. COREG [Concomitant]
  8. FISH OIL [Concomitant]
  9. LOVENOX [Concomitant]
     Dosage: 100 MILLIGRAM PER MILLILITER, 30 MILLIGRAM ONCE A DAY
  10. THYROID TAB [Concomitant]
  11. SOMA [Concomitant]
  12. CLONIDINE [Concomitant]
  13. AMBIEN [Concomitant]
  14. NEXIUM [Suspect]
     Indication: GASTROOESOPHAGEAL REFLUX DISEASE
     Route: 048
     Dates: end: 20110216
  15. MS CONTIN [Concomitant]
  16. NEURONTIN [Concomitant]
  17. HYDROCODONE BITARTRATE AND ACETAMINOPHEN [Concomitant]
     Dosage: 10/500 MILLIGRAM, ONE TABLET FOUR TIMES A DAY.
  18. TRAMADOL HCL [Concomitant]

REACTIONS (14)
  - OFF LABEL USE [None]
  - CONSTIPATION [None]
  - DRUG DOSE OMISSION [None]
  - THROMBOSIS [None]
  - PNEUMONIA ASPIRATION [None]
  - PULMONARY OEDEMA [None]
  - OEDEMA PERIPHERAL [None]
  - MALAISE [None]
  - DEVICE OCCLUSION [None]
  - ABNORMAL LOSS OF WEIGHT [None]
  - IRRITABLE BOWEL SYNDROME [None]
  - DIARRHOEA [None]
  - DIVERTICULUM [None]
  - BRADYCARDIA [None]
